FAERS Safety Report 5580220-3 (Version None)
Quarter: 2007Q4

REPORT INFORMATION
  Report Type: 
  Country: None (occurrence: None)
  Receive Date: 20071228
  Receipt Date: 20071217
  Transmission Date: 20080405
  Serious: Yes (Other)
  Sender: FDA-Public Use
  Company Number: 2007JP005662

PATIENT
  Age: 10 Year
  Sex: Female

DRUGS (2)
  1. PROGRAF [Suspect]
     Indication: BONE MARROW TRANSPLANT
  2. METHOTREXATE FORMULATION [Concomitant]

REACTIONS (3)
  - APLASIA PURE RED CELL [None]
  - BONE MARROW FAILURE [None]
  - COMPLICATIONS OF TRANSPLANT SURGERY [None]
